FAERS Safety Report 9807898 (Version 1)
Quarter: 2014Q1

REPORT INFORMATION
  Report Type: Spontaneous
  Country: FR (occurrence: FR)
  Receive Date: 20140110
  Receipt Date: 20140110
  Transmission Date: 20141002
  Serious: Yes (Hospitalization, Other)
  Sender: FDA-Public Use
  Company Number: FR-PFIZER INC-2014006736

PATIENT
  Age: 76 Year
  Sex: Male

DRUGS (3)
  1. CORDARONE [Suspect]
     Dosage: 2400 MG, (1200 MG, 2 IN SINGLE DOSE)
     Route: 048
     Dates: start: 20130104, end: 20130105
  2. CORDARONE [Suspect]
     Dosage: 400 MG, DAILY
     Route: 048
     Dates: start: 20130106, end: 20130107
  3. LASILIX [Concomitant]
     Dosage: UNK

REACTIONS (4)
  - Mixed liver injury [Recovering/Resolving]
  - Renal failure acute [Recovered/Resolved]
  - Cognitive disorder [Unknown]
  - Hepatic steatosis [Unknown]
